FAERS Safety Report 6780218-3 (Version None)
Quarter: 2010Q2

REPORT INFORMATION
  Report Type: 
  Country: None (occurrence: None)
  Receive Date: 20100618
  Receipt Date: 20100615
  Transmission Date: 20101027
  Serious: Yes (Life-Threatening, Hospitalization)
  Sender: FDA-Public Use
  Company Number: FR-CELGENEUS-056-21880-10061558

PATIENT
  Sex: Female

DRUGS (10)
  1. REVLIMID [Suspect]
     Route: 048
     Dates: start: 20091211, end: 20091218
  2. SKENAN [Suspect]
     Route: 048
  3. ACTISKENAN [Suspect]
     Route: 048
     Dates: start: 20091216, end: 20091218
  4. DECTANCYL [Suspect]
     Route: 048
     Dates: start: 20091211
  5. ZELITREX [Suspect]
     Indication: DRUG USE FOR UNKNOWN INDICATION
     Route: 048
     Dates: start: 20091211
  6. BACTRIM DS [Suspect]
     Indication: DRUG USE FOR UNKNOWN INDICATION
     Route: 048
     Dates: start: 20091211
  7. ASPEGIC 1000 [Suspect]
     Indication: DRUG USE FOR UNKNOWN INDICATION
     Route: 048
     Dates: start: 20091211
  8. TEGELINE [Suspect]
     Indication: DRUG USE FOR UNKNOWN INDICATION
     Route: 051
     Dates: start: 20091214, end: 20091214
  9. APROVEL [Concomitant]
     Indication: HYPERTENSION
     Route: 048
     Dates: end: 20091218
  10. LEVOTHYROXINE SODIUM [Concomitant]
     Indication: THYROIDECTOMY
     Route: 048

REACTIONS (3)
  - CENTRAL-ALVEOLAR HYPOVENTILATION [None]
  - COMA [None]
  - RENAL FAILURE ACUTE [None]
